FAERS Safety Report 21143302 (Version 1)
Quarter: 2022Q3

REPORT INFORMATION
  Report Type: Spontaneous
  Country: NO (occurrence: NO)
  Receive Date: 20220728
  Receipt Date: 20220728
  Transmission Date: 20221026
  Serious: Yes (Other)
  Sender: FDA-Public Use
  Company Number: NO-PFIZER INC-PV202200029102

PATIENT
  Age: 50 Year
  Sex: Female

DRUGS (3)
  1. VINCRISTINE SULFATE [Suspect]
     Active Substance: VINCRISTINE SULFATE
     Indication: Astroblastoma
     Dosage: UNK, CYCLIC
  2. PROCARBAZINE [Suspect]
     Active Substance: PROCARBAZINE
     Indication: Astroblastoma
     Dosage: UNK, CYCLIC
  3. LOMUSTINE [Suspect]
     Active Substance: LOMUSTINE
     Indication: Astroblastoma
     Dosage: UNK, CYCLIC

REACTIONS (1)
  - Myelosuppression [Unknown]
